FAERS Safety Report 25136971 (Version 2)
Quarter: 2025Q2

REPORT INFORMATION
  Report Type: Spontaneous
  Country: US (occurrence: US)
  Receive Date: 20250328
  Receipt Date: 20250404
  Transmission Date: 20250717
  Serious: No
  Sender: SANOFI AVENTIS
  Company Number: US-SA-2025SA087448

PATIENT
  Age: 14 Year
  Sex: Male

DRUGS (1)
  1. ALTUVIIIO [Suspect]
     Active Substance: EFANESOCTOCOG ALFA
     Indication: Haemorrhage
     Route: 042

REACTIONS (2)
  - Tooth loss [Unknown]
  - Epistaxis [Unknown]

NARRATIVE: CASE EVENT DATE: 20250320
